FAERS Safety Report 6931100-X (Version None)
Quarter: 2010Q3

REPORT INFORMATION
  Report Type: 
  Country: None (occurrence: None)
  Receive Date: 20100818
  Receipt Date: 20100809
  Transmission Date: 20110219
  Serious: Yes (Hospitalization)
  Sender: FDA-Public Use
  Company Number: US-AMGEN-QUU413033

PATIENT
  Sex: Female
  Weight: 69 kg

DRUGS (11)
  1. ENBREL [Suspect]
     Indication: PSORIATIC ARTHROPATHY
     Route: 058
     Dates: start: 20060101
  2. ENBREL [Suspect]
     Indication: RHEUMATOID ARTHRITIS
  3. PREDNISONE [Concomitant]
  4. METHOTREXATE [Concomitant]
     Route: 048
     Dates: start: 20080116
  5. NORCO [Concomitant]
     Route: 048
     Dates: start: 20080319
  6. CLOBETASOL PROPIONATE [Concomitant]
     Dates: start: 20080802, end: 20100427
  7. LUNESTA [Concomitant]
     Dates: start: 20080116, end: 20100427
  8. FOLIC ACID [Concomitant]
     Route: 048
     Dates: start: 20070905
  9. VITAMIN D [Concomitant]
     Dates: end: 20100427
  10. RESTORIL [Concomitant]
     Route: 048
  11. SINGULAIR [Concomitant]
     Route: 048

REACTIONS (13)
  - ALOPECIA [None]
  - ARTHRALGIA [None]
  - BRONCHOPULMONARY ASPERGILLOSIS [None]
  - ERYTHEMA [None]
  - HYPOAESTHESIA [None]
  - JOINT STIFFNESS [None]
  - JOINT SWELLING [None]
  - MYALGIA [None]
  - OEDEMA PERIPHERAL [None]
  - PARAESTHESIA [None]
  - PERICARDITIS [None]
  - PNEUMONIA STAPHYLOCOCCAL [None]
  - PNEUMONIA STREPTOCOCCAL [None]
